FAERS Safety Report 7718973-8 (Version None)
Quarter: 2011Q3

REPORT INFORMATION
  Report Type: 
  Country: None (occurrence: None)
  Receive Date: 20110830
  Receipt Date: 20110517
  Transmission Date: 20111222
  Serious: Yes (Hospitalization)
  Sender: FDA-Public Use
  Company Number: US-GLAXOSMITHKLINE-A0928863A

PATIENT
  Age: 67 Year
  Sex: Male

DRUGS (1)
  1. AVANDIA [Suspect]
     Indication: DIABETES MELLITUS
     Dosage: 4MG PER DAY
     Route: 048
     Dates: start: 20030310, end: 20070501

REACTIONS (6)
  - ATRIAL FIBRILLATION [None]
  - RENAL FAILURE [None]
  - CEREBROVASCULAR ACCIDENT [None]
  - TOTAL LUNG CAPACITY DECREASED [None]
  - PALPITATIONS [None]
  - CARDIAC FAILURE CONGESTIVE [None]
